FAERS Safety Report 8410354-7 (Version None)
Quarter: 2012Q2

REPORT INFORMATION
  Report Type: 
  Country: None (occurrence: None)
  Receive Date: 20120605
  Receipt Date: 20120601
  Transmission Date: 20120825
  Serious: Yes (Other)
  Sender: FDA-Public Use
  Company Number: PHEH2012US011253

PATIENT
  Sex: Female

DRUGS (2)
  1. GILENYA [Suspect]
     Indication: MULTIPLE SCLEROSIS
     Dosage: 0.5 MG, QD
     Route: 048
  2. HORMONES NOS [Concomitant]

REACTIONS (6)
  - WHITE BLOOD CELL COUNT DECREASED [None]
  - DEHYDRATION [None]
  - PYREXIA [None]
  - PAIN IN EXTREMITY [None]
  - UTERINE LEIOMYOMA [None]
  - BACK PAIN [None]
